FAERS Safety Report 24296519 (Version 1)
Quarter: 2024Q3

REPORT INFORMATION
  Report Type: Spontaneous
  Country: US (occurrence: US)
  Receive Date: 20240909
  Receipt Date: 20240909
  Transmission Date: 20241017
  Serious: Yes (Hospitalization, Other)
  Sender: HIKMA
  Company Number: US-HIKMA PHARMACEUTICALS-US-H14001-24-08149

PATIENT

DRUGS (6)
  1. FENTANYL [Suspect]
     Active Substance: FENTANYL\FENTANYL CITRATE
     Indication: Product used for unknown indication
     Dosage: UNKNOWN
     Route: 045
  2. NALOXONE [Suspect]
     Active Substance: NALOXONE
     Dosage: 0.2 MILLIGRAM
     Route: 040
  3. NALOXONE [Suspect]
     Active Substance: NALOXONE
     Indication: Apnoea
     Dosage: 0.4 MILLIGRAM
     Route: 042
  4. NALOXONE [Suspect]
     Active Substance: NALOXONE
     Dosage: 0.4 MILLIGRAM/HOUR
     Route: 041
  5. NALOXONE [Suspect]
     Active Substance: NALOXONE
     Dosage: 2 MILLIGRAM
     Route: 045
  6. NALOXONE [Suspect]
     Active Substance: NALOXONE
     Indication: Apnoea
     Dosage: 6 MILLIGRAM
     Route: 045

REACTIONS (1)
  - Toxicity to various agents [Recovering/Resolving]
